APPROVED DRUG PRODUCT: DANAZOL
Active Ingredient: DANAZOL
Strength: 100MG
Dosage Form/Route: CAPSULE;ORAL
Application: A074582 | Product #002 | TE Code: AB
Applicant: BARR LABORATORIES INC
Approved: May 29, 1998 | RLD: No | RS: No | Type: RX